FAERS Safety Report 4365141-6 (Version None)
Quarter: 2004Q2

REPORT INFORMATION
  Report Type: 
  Country: None (occurrence: None)
  Receive Date: 20040525
  Receipt Date: 20040218
  Transmission Date: 20050107
  Serious: No
  Sender: FDA-Public Use
  Company Number: PHEH2004US02091

PATIENT
  Age: 41 Year
  Sex: Female

DRUGS (6)
  1. ZELNORM [Suspect]
     Indication: IRRITABLE BOWEL SYNDROME
     Dosage: 6 MG, BID, ORAL
     Route: 048
     Dates: start: 20040216
  2. FLEXERIL [Concomitant]
  3. VIOXX [Concomitant]
  4. DARVOCET-N (DEXTROPROPOXYPHENE NAPSILATE) [Concomitant]
  5. PREVACID [Concomitant]
  6. ALAVERT (LORATADINE) [Concomitant]

REACTIONS (3)
  - CONDITION AGGRAVATED [None]
  - FIBROMYALGIA [None]
  - PAIN [None]
